FAERS Safety Report 8940965 (Version 1)
Quarter: 2012Q4

REPORT INFORMATION
  Report Type: 
  Country: AU (occurrence: AU)
  Receive Date: 20121203
  Receipt Date: 20121203
  Transmission Date: 20130627
  Serious: Yes (Other)
  Sender: FDA-Public Use
  Company Number: AU-ROCHE-1161070

PATIENT
  Age: 58 Year
  Sex: Female

DRUGS (4)
  1. BEVACIZUMAB [Suspect]
     Indication: PRODUCT USED FOR UNKNOWN INDICATION
     Dosage: every 3 day of week
     Route: 065
  2. PEMETREXED [Concomitant]
     Dosage: every 3 day of week
     Route: 065
  3. ZOLEDRONATE [Concomitant]
     Dosage: every 3 day of week
     Route: 065
  4. CARBOPLATIN [Concomitant]
     Dosage: every 3 day of week
     Route: 065

REACTIONS (3)
  - Back pain [Unknown]
  - Back pain [Unknown]
  - Bone disorder [Unknown]
